FAERS Safety Report 5049229-2 (Version None)
Quarter: 2006Q2

REPORT INFORMATION
  Report Type: 
  Country: None (occurrence: None)
  Receive Date: 20060601
  Receipt Date: 20060301
  Transmission Date: 20061013
  Serious: No
  Sender: FDA-Public Use
  Company Number: US200603000643

PATIENT
  Sex: Female

DRUGS (7)
  1. CYMBALTA [Suspect]
     Indication: BIPOLAR I DISORDER
     Dosage: SEE IMAGE
     Dates: start: 20051201, end: 20060101
  2. CYMBALTA [Suspect]
     Indication: BIPOLAR I DISORDER
     Dosage: SEE IMAGE
     Dates: start: 20060101
  3. LITHIUM (LITHIUM) [Concomitant]
  4. PAXIL [Concomitant]
  5. SYNTHROID [Concomitant]
  6. NEXIUM /UNK/ (ESOMEPRAZOLE) [Concomitant]
  7. VIVELLE-DOT [Concomitant]

REACTIONS (3)
  - BLEPHAROSPASM [None]
  - DEPRESSION [None]
  - SUICIDAL IDEATION [None]
